FAERS Safety Report 13730517 (Version 1)
Quarter: 2017Q3

REPORT INFORMATION
  Report Type: Spontaneous
  Country: IT (occurrence: IT)
  Receive Date: 20170707
  Receipt Date: 20170707
  Transmission Date: 20171127
  Serious: Yes (Hospitalization)
  Sender: FDA-Public Use
  Company Number: IT-TEVA-783638ROM

PATIENT
  Age: 52 Year
  Sex: Male

DRUGS (1)
  1. ALLOPURINOL. [Suspect]
     Active Substance: ALLOPURINOL
     Route: 065

REACTIONS (4)
  - Hypoxia [Recovering/Resolving]
  - Toxic epidermal necrolysis [Recovering/Resolving]
  - Haemoptysis [Recovering/Resolving]
  - Acute respiratory failure [Recovering/Resolving]
